FAERS Safety Report 16373419 (Version 2)
Quarter: 2019Q2

REPORT INFORMATION
  Report Type: Spontaneous
  Country: CN (occurrence: CN)
  Receive Date: 20190530
  Receipt Date: 20190605
  Transmission Date: 20190711
  Serious: Yes (Hospitalization, Other)
  Sender: FDA-Public Use
  Company Number: CN-PFIZER INC-2019228755

PATIENT
  Age: 69 Year
  Sex: Male

DRUGS (3)
  1. AZITHROMYCIN ANHYDROUS. [Suspect]
     Active Substance: AZITHROMYCIN ANHYDROUS
     Indication: TRACHEITIS
     Dosage: 0.25 G, 1X/DAY
  2. SIMVASTATIN. [Interacting]
     Active Substance: SIMVASTATIN
     Indication: LIPIDS DECREASED
     Dosage: 40 MG, 1X/DAY (AT NIGHT)
     Route: 048
  3. SIMVASTATIN. [Interacting]
     Active Substance: SIMVASTATIN
     Indication: MICROALBUMINURIA

REACTIONS (2)
  - Liver injury [Recovered/Resolved]
  - Drug interaction [Unknown]
